FAERS Safety Report 10416794 (Version 1)
Quarter: 2014Q3

REPORT INFORMATION
  Report Type: Spontaneous
  Country: US (occurrence: US)
  Receive Date: 20140828
  Receipt Date: 20140828
  Transmission Date: 20150326
  Serious: No
  Sender: FDA-Public Use
  Company Number: US-BAYER-2014-127718

PATIENT

DRUGS (1)
  1. ULTRAVIST [Suspect]
     Active Substance: IOPROMIDE
     Dosage: 100 ML, UNK
     Route: 042
     Dates: start: 20140822, end: 20140822

REACTIONS (2)
  - Dyspnoea [Unknown]
  - Tongue disorder [Unknown]

NARRATIVE: CASE EVENT DATE: 20140822
